FAERS Safety Report 5079582-5 (Version None)
Quarter: 2006Q3

REPORT INFORMATION
  Report Type: 
  Country: None (occurrence: None)
  Receive Date: 20060808
  Receipt Date: 20060721
  Transmission Date: 20061208
  Serious: Yes (Other)
  Sender: FDA-Public Use
  Company Number: US200607003838

PATIENT
  Age: 64 Year
  Sex: Female

DRUGS (14)
  1. CYMBALTA [Suspect]
     Indication: DEPRESSION
     Dosage: SEE IMAGE
     Dates: start: 20060601
  2. CYMBALTA [Suspect]
     Indication: DEPRESSION
     Dosage: SEE IMAGE
     Dates: start: 20060601
  3. CYMBALTA [Suspect]
     Indication: DEPRESSION
     Dosage: SEE IMAGE
     Dates: start: 20060601
  4. ZOLOFT [Concomitant]
  5. PREDNISONE TAB [Concomitant]
  6. LORAZEPAM [Concomitant]
  7. GABAPENTIN [Concomitant]
  8. LITHIUM (LITHIUM) [Concomitant]
  9. LOPERAMIDE HCL [Concomitant]
  10. FERROUS SULFATE TAB [Concomitant]
  11. FOLIC AICD (FOLIC ACID) [Concomitant]
  12. MAG-TAB SR /US/ (MAGNESIU LACTATE) [Concomitant]
  13. CALCIUM SAUTER  /01617901/ (ASCORBIC ACID, CALCIUM GLUCONATE, CALCIUM [Concomitant]
  14. VITAMIN E [Concomitant]

REACTIONS (5)
  - DRUG INEFFECTIVE [None]
  - HAEMORRHAGE [None]
  - HYPERHIDROSIS [None]
  - ROAD TRAFFIC ACCIDENT [None]
  - STERNAL FRACTURE [None]
